FAERS Safety Report 5978969-3 (Version None)
Quarter: 2008Q4

REPORT INFORMATION
  Report Type: 
  Country: None (occurrence: None)
  Receive Date: 20081204
  Receipt Date: 20080102
  Transmission Date: 20090506
  Serious: No
  Sender: FDA-Public Use
  Company Number: US-ABBOTT-08P-163-0432219-00

PATIENT
  Age: 37 Year
  Sex: Male
  Weight: 90.8 kg

DRUGS (3)
  1. TRICOR [Suspect]
     Indication: BLOOD TRIGLYCERIDES INCREASED
     Route: 048
     Dates: start: 20060301
  2. EZETIMIBE [Concomitant]
     Indication: BLOOD CHOLESTEROL INCREASED
     Route: 048
     Dates: start: 20070901
  3. ASPIRIN [Concomitant]
     Indication: CEREBROVASCULAR ACCIDENT
     Route: 048
     Dates: start: 20071201

REACTIONS (4)
  - INSOMNIA [None]
  - MUSCULAR WEAKNESS [None]
  - MYALGIA [None]
  - TINNITUS [None]
